FAERS Safety Report 16715225 (Version 1)
Quarter: 2019Q3

REPORT INFORMATION
  Report Type: Spontaneous
  Country: US (occurrence: US)
  Receive Date: 20190702
  Receipt Date: 20190702
  Transmission Date: 20191005
  Serious: No
  Sender: FDA-Public Use
  Company Number: None

PATIENT
  Age: 52 Year
  Sex: Female

DRUGS (1)
  1. HYDROMORPHONE ER [Suspect]
     Active Substance: HYDROMORPHONE HYDROCHLORIDE
     Dosage: ?          OTHER FREQUENCY:OTHER;?
     Route: 048
     Dates: start: 201906

REACTIONS (2)
  - Migraine [None]
  - Somnolence [None]

NARRATIVE: CASE EVENT DATE: 20190702
